FAERS Safety Report 19757573 (Version 4)
Quarter: 2022Q1

REPORT INFORMATION
  Report Type: Report from Study
  Country: US (occurrence: US)
  Receive Date: 20210828
  Receipt Date: 20220208
  Transmission Date: 20220424
  Serious: No
  Sender: FDA-Public Use
  Company Number: NVSC2021US194372

PATIENT
  Sex: Male

DRUGS (2)
  1. ENTRESTO [Suspect]
     Active Substance: SACUBITRIL\VALSARTAN
     Indication: Product used for unknown indication
     Dosage: 24 MG, BID
     Route: 048
     Dates: start: 20210526
  2. ENTRESTO [Suspect]
     Active Substance: SACUBITRIL\VALSARTAN
     Dosage: 49/51MG BID
     Route: 065

REACTIONS (8)
  - Hypoacusis [Unknown]
  - Ill-defined disorder [Not Recovered/Not Resolved]
  - Heart rate increased [Unknown]
  - Hypertension [Unknown]
  - Micturition disorder [Not Recovered/Not Resolved]
  - Incorrect dose administered [Unknown]
  - Product dose omission issue [Not Recovered/Not Resolved]
  - Complication associated with device [Not Recovered/Not Resolved]
